FAERS Safety Report 25589391 (Version 2)
Quarter: 2025Q3

REPORT INFORMATION
  Report Type: Report from Study
  Country: US (occurrence: US)
  Receive Date: 20250722
  Receipt Date: 20250919
  Transmission Date: 20251020
  Serious: No
  Sender: SUNOVION
  Company Number: US-SUMITOMO PHARMA SWITZERLAND GMBH-2025SPA008611

PATIENT
  Age: 67 Year
  Sex: Male

DRUGS (17)
  1. ORGOVYX [Suspect]
     Active Substance: RELUGOLIX
     Indication: Product used for unknown indication
     Route: 048
  2. METOPROLOL SUCCINATE [Suspect]
     Active Substance: METOPROLOL SUCCINATE
  3. ASPERCREME WITH LIDOCAINE [Concomitant]
     Active Substance: LIDOCAINE
  4. BACITRACIN [Concomitant]
     Active Substance: BACITRACIN
     Route: 047
  5. OMEPRAZOLE [Concomitant]
     Active Substance: OMEPRAZOLE
  6. SENNA PLUS [Concomitant]
     Active Substance: DOCUSATE SODIUM\SENNOSIDES\SENNOSIDES A AND B
  7. CYMBALTA [Concomitant]
     Active Substance: DULOXETINE HYDROCHLORIDE
  8. DOCUSATE SODIUM [Concomitant]
     Active Substance: DOCUSATE SODIUM
  9. ENOXAPARIN SODIUM [Concomitant]
     Active Substance: ENOXAPARIN SODIUM
  10. VITAMIN D3 [Concomitant]
     Active Substance: CHOLECALCIFEROL
  11. GABAPENTIN [Concomitant]
     Active Substance: GABAPENTIN
  12. METHOCARBAMOL [Concomitant]
     Active Substance: METHOCARBAMOL
  13. POLYETHYLENE GLYCOL 3350 [Concomitant]
     Active Substance: POLYETHYLENE GLYCOL 3350
  14. SIMVASTATIN [Concomitant]
     Active Substance: SIMVASTATIN
  15. TAMSULOSIN HYDROCHLORIDE [Concomitant]
     Active Substance: TAMSULOSIN HYDROCHLORIDE
  16. FLUTICASONE PROPIONATE [Concomitant]
     Active Substance: FLUTICASONE PROPIONATE
  17. LEVOCETIRIZINE DIHYDROCHLORIDE [Concomitant]
     Active Substance: LEVOCETIRIZINE DIHYDROCHLORIDE

REACTIONS (7)
  - Blood pressure decreased [Recovering/Resolving]
  - Joint injury [Not Recovered/Not Resolved]
  - Testicular pain [Not Recovered/Not Resolved]
  - Dizziness [Recovered/Resolved]
  - Hot flush [Unknown]
  - Incorrect dose administered [Recovered/Resolved]
  - Product dose omission in error [Recovered/Resolved]
